FAERS Safety Report 5336329-2 (Version None)
Quarter: 2007Q2

REPORT INFORMATION
  Report Type: 
  Country: None (occurrence: None)
  Receive Date: 20070523
  Receipt Date: 20070509
  Transmission Date: 20071010
  Serious: Yes (Other)
  Sender: FDA-Public Use
  Company Number: POMP-11052

PATIENT
  Age: 33 Year
  Sex: Female
  Weight: 73 kg

DRUGS (9)
  1. MYOZYME [Suspect]
     Indication: GLYCOGEN STORAGE DISEASE TYPE II
     Dosage: 10 MG/KG QWK IV
     Route: 042
     Dates: start: 20070507
  2. ALPHA-GLUCOSIDASE (HUMAN, RECOMBINANT, CHO CELLS, GENZYME) OR PLACEBO. [Suspect]
     Indication: GLYCOGEN STORAGE DISEASE TYPE II
     Dosage: 20 MG/KG Q2WKS IV
     Route: 042
     Dates: start: 20060308, end: 20060320
  3. ALPHA-GLUCOSIDASE (HUMAN, RECOMBINANT, CHO CELLS, GENZYME) OR PLACEBO. [Suspect]
  4. ALPHA-GLUCOSIDASE (HUMAN, RECOMBINANT, CHO CELLS, GENZYME) OR PLACEBO. [Suspect]
  5. PREDNISONE TAB [Concomitant]
  6. SYNTHROID. MFR: FLINT LABORATORIES, INCORPORATED [Concomitant]
  7. NAPROXEN [Concomitant]
  8. HYDROCODONE BITARTRATE [Concomitant]
  9. HYDROCORTISONE [Concomitant]

REACTIONS (15)
  - CHEST DISCOMFORT [None]
  - DIZZINESS [None]
  - DYSPNOEA [None]
  - FLUSHING [None]
  - HEADACHE [None]
  - HYPERSENSITIVITY [None]
  - NAUSEA [None]
  - OXYGEN SATURATION DECREASED [None]
  - PEAK EXPIRATORY FLOW RATE DECREASED [None]
  - PRURITUS [None]
  - RASH PAPULAR [None]
  - SINUS TACHYCARDIA [None]
  - SKIN TEST POSITIVE [None]
  - URTICARIA [None]
  - WHEEZING [None]
